FAERS Safety Report 10383758 (Version 1)
Quarter: 2014Q3

REPORT INFORMATION
  Report Type: Spontaneous
  Country: US (occurrence: None)
  Receive Date: 20140813
  Receipt Date: 20140813
  Transmission Date: 20150326
  Serious: Yes (Death)
  Sender: FDA-Public Use
  Company Number: None

PATIENT
  Age: 34 Year
  Sex: Male
  Weight: 71.4 kg

DRUGS (1)
  1. EXJADE [Suspect]
     Active Substance: DEFERASIROX
     Dosage: 30 DAYS OR LESS?FIRST/ONLY DELIVERY WAS 6-30-14
     Route: 048

REACTIONS (2)
  - Lymphoma [None]
  - Sickle cell anaemia [None]

NARRATIVE: CASE EVENT DATE: 20140810
